FAERS Safety Report 12204848 (Version 1)
Quarter: 2016Q1

REPORT INFORMATION
  Report Type: Spontaneous
  Country: US (occurrence: US)
  Receive Date: 20160323
  Receipt Date: 20160323
  Transmission Date: 20160526
  Serious: Yes (Hospitalization)
  Sender: FDA-Public Use
  Company Number: US-SHIRE-US201603109

PATIENT
  Age: 56 Year
  Sex: Female

DRUGS (4)
  1. NATPARA (PARATHYROID HORMONE) [Suspect]
     Active Substance: PARATHYROID HORMONE
     Dosage: 75 ?G, 1X/DAY:QD
     Route: 058
  2. HCTZ [Concomitant]
     Active Substance: HYDROCHLOROTHIAZIDE
     Indication: DIURETIC THERAPY
     Dosage: UNK
     Route: 065
  3. CALCIUM CITRATE [Concomitant]
     Active Substance: CALCIUM CITRATE
     Indication: SUPPLEMENTATION THERAPY
     Dosage: 1000 MG, 1X/DAY:QD
     Route: 048
  4. NATPARA (PARATHYROID HORMONE) [Suspect]
     Active Substance: PARATHYROID HORMONE
     Indication: HYPOPARATHYROIDISM
     Dosage: 100 ?G, 1X/DAY:QD
     Route: 058
     Dates: start: 2011

REACTIONS (6)
  - Tremor [Unknown]
  - Fatigue [Unknown]
  - Somnolence [Unknown]
  - Drug dose omission [Unknown]
  - Lethargy [Unknown]
  - Headache [Unknown]

NARRATIVE: CASE EVENT DATE: 20160311
